FAERS Safety Report 8232771 (Version 2)
Quarter: 2013Q2

REPORT INFORMATION
  Report Type: Report from Study
  Country: FR (occurrence: FR)
  Receive Date: 20111107
  Receipt Date: 20130516
  Transmission Date: 20140414
  Serious: Yes (Death)
  Sender: FDA-Public Use
  Company Number: FR-ROCHE-1003429

PATIENT
  Age: 63 Year
  Sex: Female
  Weight: 64 kg

DRUGS (19)
  1. PACLITAXEL [Suspect]
     Indication: BREAST CANCER
     Route: 042
     Dates: start: 20110817, end: 20110928
  2. FLIXOTIDE [Concomitant]
     Indication: ASTHMA
     Route: 065
  3. LEVOTHYROXINE [Concomitant]
     Route: 065
  4. SEREVENT [Concomitant]
     Indication: ASTHMA
  5. SEROPLEX [Concomitant]
     Indication: DEPRESSION
     Route: 065
     Dates: start: 20110825, end: 20110915
  6. ARIXTRA [Concomitant]
     Route: 065
     Dates: start: 20110912
  7. TOPALGIC LP [Concomitant]
     Indication: VENOUS THROMBOSIS
     Route: 065
     Dates: start: 20110912, end: 20110913
  8. PARACETAMOL [Concomitant]
     Route: 065
     Dates: start: 20110912, end: 20110912
  9. IXPRIM [Concomitant]
     Indication: PAIN IN EXTREMITY
     Route: 065
     Dates: start: 20110920
  10. POLARAMINE [Concomitant]
     Indication: PREMEDICATION
     Route: 065
     Dates: start: 20110921, end: 20110921
  11. POLARAMINE [Concomitant]
     Route: 065
     Dates: start: 20110914, end: 20110914
  12. POLARAMINE [Concomitant]
     Route: 065
     Dates: start: 20110928, end: 20110928
  13. AZANTAC [Concomitant]
     Route: 065
     Dates: start: 20110914, end: 20110914
  14. AZANTAC [Concomitant]
     Route: 065
     Dates: start: 20110921, end: 20110921
  15. AZANTAC [Concomitant]
     Route: 065
     Dates: start: 20110928, end: 20110928
  16. METHYLPREDNISOLON [Concomitant]
     Route: 065
     Dates: start: 20110914, end: 20110914
  17. METHYLPREDNISOLON [Concomitant]
     Route: 065
     Dates: start: 20110921, end: 20110921
  18. BEVACIZUMAB [Suspect]
     Indication: BREAST CANCER
     Route: 042
     Dates: start: 20110817, end: 20110831
  19. PLACEBO [Suspect]
     Indication: BREAST CANCER
     Route: 042
     Dates: start: 20110817, end: 20110928

REACTIONS (1)
  - Completed suicide [Fatal]
